FAERS Safety Report 12142354 (Version 1)
Quarter: 2016Q1

REPORT INFORMATION
  Report Type: Not Available
  Country: None (occurrence: US)
  Receive Date: 20160303
  Receipt Date: 20160303
  Transmission Date: 20160526
  Serious: No
  Sender: FDA-Public Use
  Company Number: US-AKORN-24571

PATIENT
  Sex: Male

DRUGS (1)
  1. THERATEARS LUBRICANT [Suspect]
     Active Substance: CARBOXYMETHYLCELLULOSE SODIUM

REACTIONS (1)
  - Eye irritation [Recovered/Resolved]

NARRATIVE: CASE EVENT DATE: 20160215
